FAERS Safety Report 17765175 (Version 1)
Quarter: 2020Q2

REPORT INFORMATION
  Report Type: Spontaneous
  Country: DE (occurrence: DE)
  Receive Date: 20200511
  Receipt Date: 20200511
  Transmission Date: 20200714
  Serious: Yes (Other)
  Sender: FDA-Public Use
  Company Number: DE-BAYER-2020-073329

PATIENT
  Age: 60 Year
  Sex: Female
  Weight: 53 kg

DRUGS (2)
  1. GADOVIST [Suspect]
     Active Substance: GADOBUTROL
     Dosage: UNK
     Dates: start: 20190819
  2. PREDNISOLONE. [Concomitant]
     Active Substance: PREDNISOLONE
     Dosage: UNK
     Dates: start: 20181220

REACTIONS (13)
  - Dizziness [None]
  - Tinnitus [None]
  - Cardiac discomfort [None]
  - Polyneuropathy [None]
  - Arthralgia [None]
  - Myalgia [None]
  - Fatigue [None]
  - Blood pressure fluctuation [None]
  - Sensation of foreign body [None]
  - Memory impairment [None]
  - Asthenia [None]
  - Abnormal loss of weight [None]
  - Dyspnoea [None]

NARRATIVE: CASE EVENT DATE: 20190901
